FAERS Safety Report 10233079 (Version 1)
Quarter: 2014Q2

REPORT INFORMATION
  Report Type: Spontaneous
  Country: US (occurrence: US)
  Receive Date: 20140612
  Receipt Date: 20140612
  Transmission Date: 20141212
  Serious: No
  Sender: FDA-Public Use
  Company Number: US-ASTRAZENECA-2014SE38364

PATIENT
  Age: 54 Year
  Sex: Female
  Weight: 149.7 kg

DRUGS (10)
  1. SYMBICORT [Suspect]
     Indication: CHRONIC OBSTRUCTIVE PULMONARY DISEASE
     Dosage: 2 PUFFS BID
     Route: 055
     Dates: start: 2013
  2. SYMBICORT [Suspect]
     Indication: CHRONIC OBSTRUCTIVE PULMONARY DISEASE
     Route: 055
  3. XANAX XR [Concomitant]
     Indication: PANIC ATTACK
     Route: 048
  4. XANAX [Concomitant]
     Indication: PANIC ATTACK
     Route: 048
  5. KLONIDINE [Concomitant]
     Indication: BLOOD PRESSURE ABNORMAL
     Route: 048
  6. ZOLOFT [Concomitant]
     Indication: ANTIDEPRESSANT THERAPY
     Route: 048
  7. PANTOPRAZOLE [Concomitant]
     Indication: GASTROOESOPHAGEAL REFLUX DISEASE
     Route: 048
  8. K-LOR [Concomitant]
     Indication: BLOOD POTASSIUM
     Route: 048
  9. K-LOR [Concomitant]
     Indication: BLOOD POTASSIUM
     Route: 048
  10. ZERTEC [Concomitant]
     Indication: MULTIPLE ALLERGIES
     Route: 048

REACTIONS (5)
  - Vomiting [Unknown]
  - Dry mouth [Unknown]
  - Muscle spasms [Not Recovered/Not Resolved]
  - Cough [Unknown]
  - Fungal infection [Unknown]
